FAERS Safety Report 12662496 (Version 1)
Quarter: 2016Q3

REPORT INFORMATION
  Report Type: Spontaneous
  Country: GB (occurrence: GB)
  Receive Date: 20160817
  Receipt Date: 20160817
  Transmission Date: 20161109
  Serious: Yes (Death, Other)
  Sender: FDA-Public Use
  Company Number: GB-ASTRAZENECA-2016SE87888

PATIENT
  Age: 73 Year
  Sex: Male
  Weight: 63 kg

DRUGS (21)
  1. DULOXETINE. [Concomitant]
     Active Substance: DULOXETINE
  2. BISOPROLOL [Concomitant]
     Active Substance: BISOPROLOL
  3. GABAPENTIN. [Concomitant]
     Active Substance: GABAPENTIN
  4. TAMSULOSIN [Concomitant]
     Active Substance: TAMSULOSIN
  5. HYDROXOCOBALAMIN [Concomitant]
     Active Substance: HYDROXOCOBALAMIN
  6. HUMULIN NOS [Concomitant]
     Active Substance: INSULIN HUMAN
  7. PARACETAMOL [Concomitant]
     Active Substance: ACETAMINOPHEN
  8. FERROUS FUMARATE [Concomitant]
     Active Substance: FERROUS FUMARATE
  9. GLICLAZIDE [Concomitant]
     Active Substance: GLICLAZIDE
  10. GLYCERYL TRINITRATE [Concomitant]
     Active Substance: NITROGLYCERIN
  11. SERETIDE [Concomitant]
     Active Substance: FLUTICASONE PROPIONATE\SALMETEROL XINAFOATE
  12. VENTOLIN [Concomitant]
     Active Substance: ALBUTEROL SULFATE
  13. CLOPIDOGREL [Concomitant]
     Active Substance: CLOPIDOGREL BISULFATE
  14. LANSOPRAZOLE. [Concomitant]
     Active Substance: LANSOPRAZOLE
  15. FOLIC ACID. [Concomitant]
     Active Substance: FOLIC ACID
  16. FUROSEMIDE. [Concomitant]
     Active Substance: FUROSEMIDE
  17. HYDROCORTISONE. [Concomitant]
     Active Substance: HYDROCORTISONE
  18. ATORVASTATIN [Concomitant]
     Active Substance: ATORVASTATIN
  19. MEROPENEM. [Suspect]
     Active Substance: MEROPENEM
     Indication: SEPSIS
     Dosage: 1.0G UNKNOWN
     Route: 042
     Dates: start: 20160718, end: 20160718
  20. RIVAROXABAN [Concomitant]
     Active Substance: RIVAROXABAN
  21. TRAMADOL. [Concomitant]
     Active Substance: TRAMADOL

REACTIONS (4)
  - Nausea [Not Recovered/Not Resolved]
  - Cardiac arrest [Fatal]
  - Dysgeusia [Not Recovered/Not Resolved]
  - Contraindicated product administered [Not Recovered/Not Resolved]

NARRATIVE: CASE EVENT DATE: 20160718
